FAERS Safety Report 8236256-7 (Version None)
Quarter: 2012Q1

REPORT INFORMATION
  Report Type: 
  Country: None (occurrence: None)
  Receive Date: 20120326
  Receipt Date: 20120326
  Transmission Date: 20120608
  Serious: Yes (Other)
  Sender: FDA-Public Use
  Company Number: None

PATIENT
  Age: 47 Year
  Sex: Female
  Weight: 136.0791 kg

DRUGS (4)
  1. BENADRYL [Concomitant]
  2. STEROIDS [Concomitant]
  3. AVANDIA [Suspect]
     Dosage: 1 DAILY
  4. GLYBURIDE [Suspect]
     Dosage: 1 DAILY

REACTIONS (1)
  - DRUG HYPERSENSITIVITY [None]
